FAERS Safety Report 9901840 (Version 1)
Quarter: 2014Q1

REPORT INFORMATION
  Report Type: Spontaneous
  Country: US (occurrence: US)
  Receive Date: 20140217
  Receipt Date: 20140217
  Transmission Date: 20141002
  Serious: Yes (Other)
  Sender: FDA-Public Use
  Company Number: US-GLAXOSMITHKLINE-A1060471A

PATIENT
  Sex: Male

DRUGS (1)
  1. ADVAIR [Suspect]
     Indication: CHRONIC OBSTRUCTIVE PULMONARY DISEASE
     Route: 055

REACTIONS (9)
  - Angina pectoris [Unknown]
  - Cardiac disorder [Unknown]
  - Chest pain [Unknown]
  - Crepitations [Unknown]
  - Wheezing [Unknown]
  - Therapeutic response decreased [Unknown]
  - Drug administration error [Unknown]
  - Dyspnoea [Unknown]
  - Refusal of treatment by patient [Unknown]
